FAERS Safety Report 18992217 (Version 2)
Quarter: 2021Q1

REPORT INFORMATION
  Report Type: Spontaneous
  Country: CA (occurrence: CA)
  Receive Date: 20210310
  Receipt Date: 20210311
  Transmission Date: 20210420
  Serious: Yes (Other)
  Sender: FDA-Public Use
  Company Number: CA-AMERICAN REGENT INC-2021000583

PATIENT
  Age: 24 Year
  Sex: Female

DRUGS (2)
  1. VENOFER [Suspect]
     Active Substance: IRON SUCROSE
     Dosage: 300 MILLIGRAM, ONCE
  2. VENOFER [Suspect]
     Active Substance: IRON SUCROSE
     Indication: SERUM FERRITIN DECREASED
     Dosage: 300 MILLIGRAM, ONCE

REACTIONS (5)
  - Joint swelling [Recovered/Resolved]
  - Nausea [Recovered/Resolved]
  - Fatigue [Recovered/Resolved]
  - Syncope [Recovered/Resolved]
  - Swelling face [Recovered/Resolved]
